FAERS Safety Report 6145996-5 (Version None)
Quarter: 2009Q2

REPORT INFORMATION
  Report Type: 
  Country: None (occurrence: None)
  Receive Date: 20090407
  Receipt Date: 20090327
  Transmission Date: 20091009
  Serious: Yes (Hospitalization)
  Sender: FDA-Public Use
  Company Number: JP-BIOGENIDEC-2008BI012342

PATIENT
  Age: 42 Year
  Sex: Female

DRUGS (13)
  1. AVONEX [Suspect]
     Indication: RELAPSING-REMITTING MULTIPLE SCLEROSIS
     Route: 030
     Dates: start: 20070604, end: 20081006
  2. AVONEX [Suspect]
     Route: 030
     Dates: start: 20081101
  3. IMURAN [Concomitant]
     Indication: RELAPSING-REMITTING MULTIPLE SCLEROSIS
     Route: 048
     Dates: start: 20070601, end: 20081023
  4. ADALAT [Concomitant]
     Dates: start: 20070601
  5. OLMETEC [Concomitant]
     Dates: start: 20070601
  6. MAGLAX [Concomitant]
     Dates: start: 20070601, end: 20080701
  7. RIVOTRIL [Concomitant]
     Dates: start: 20070601
  8. TRYPTANOL [Concomitant]
     Dates: start: 20070801
  9. DECACORT [Concomitant]
     Dates: start: 20081029, end: 20081031
  10. DENOSINE [Concomitant]
     Dates: start: 20081024, end: 20081031
  11. PREDONINE [Concomitant]
     Route: 048
     Dates: start: 20081101, end: 20081106
  12. PREDONINE [Concomitant]
     Route: 048
     Dates: start: 20081107, end: 20081113
  13. PREDONINE [Concomitant]
     Route: 048
     Dates: start: 20081114, end: 20081203

REACTIONS (1)
  - CYTOMEGALOVIRUS INFECTION [None]
